FAERS Safety Report 5890107-4 (Version None)
Quarter: 2008Q3

REPORT INFORMATION
  Report Type: 
  Country: None (occurrence: None)
  Receive Date: 20080919
  Receipt Date: 20080902
  Transmission Date: 20090109
  Serious: No
  Sender: FDA-Public Use
  Company Number: US-B.I. PHARMACEUTICALS,INC./RIDGEFIELD-2008-BP-13931BP

PATIENT
  Sex: Male

DRUGS (3)
  1. MIRAPEX [Suspect]
     Indication: ESSENTIAL TREMOR
     Dosage: 1.5MG
     Route: 048
     Dates: start: 20070101, end: 20080822
  2. INDERAL [Concomitant]
     Indication: ESSENTIAL TREMOR
     Dosage: 60MG
     Route: 048
  3. SYNTHROID [Concomitant]
     Indication: THYROID DISORDER
     Dosage: 50MG
     Route: 048

REACTIONS (2)
  - MUSCLE TIGHTNESS [None]
  - MUSCULOSKELETAL DISCOMFORT [None]
